FAERS Safety Report 12389799 (Version 1)
Quarter: 2016Q2

REPORT INFORMATION
  Report Type: Spontaneous
  Country: SA (occurrence: SA)
  Receive Date: 20160520
  Receipt Date: 20160520
  Transmission Date: 20160815
  Serious: Yes (Hospitalization)
  Sender: FDA-Public Use
  Company Number: SA-ROXANE LABORATORIES, INC.-2016-RO-00889RO

PATIENT
  Age: 65 Year
  Sex: Male

DRUGS (1)
  1. LITHIUM CARBONATE CAPSULES USP, 150 MG [Suspect]
     Active Substance: LITHIUM CARBONATE
     Indication: BIPOLAR I DISORDER
     Dosage: 900 MG
     Route: 065

REACTIONS (8)
  - Acute kidney injury [Unknown]
  - Hyperparathyroidism [Unknown]
  - Overdose [Recovered/Resolved]
  - Hypothyroidism [Unknown]
  - Nephrogenic diabetes insipidus [Unknown]
  - Toxicity to various agents [Recovered/Resolved]
  - Leukocytosis [Recovered/Resolved]
  - Encephalopathy [Unknown]
